FAERS Safety Report 14650778 (Version 1)
Quarter: 2018Q1

REPORT INFORMATION
  Report Type: Spontaneous
  Country: ES (occurrence: ES)
  Receive Date: 20180316
  Receipt Date: 20180316
  Transmission Date: 20180509
  Serious: Yes (Hospitalization)
  Sender: FDA-Public Use
  Company Number: ES-TEVA-2018-ES-868183

PATIENT
  Age: 81 Year
  Sex: Female

DRUGS (8)
  1. FENTANYL TRANSDERMAL SYSTEM [Suspect]
     Active Substance: FENTANYL
     Indication: ARTHRALGIA
     Dosage: 5 PATCHES
     Route: 062
  2. IXIA 20 MG COMPRIMIDOS RECUBIERTOS , 28 COMPRIMIDOS [Concomitant]
     Indication: HYPERTENSION
     Route: 048
  3. PONTALSIC 37,5 MG/325 MG COMPRIMIDOS RECUBIERTOS , 20 COMPRIMIDOS [Concomitant]
     Indication: ARTHRALGIA
     Route: 048
  4. ANAGASTRA 40 MG COMPRIMIDOS GASTRORRESISTENTES , 28 COMPRIMIDOS [Concomitant]
     Indication: CHRONIC GASTRITIS
     Route: 048
  5. ELIQUIS 5 MG COMPRIMIDO RECUBIERTO CON PELICULA, 60 COMPRIMIDOS [Concomitant]
     Indication: ATRIAL FIBRILLATION
     Route: 048
  6. NEURONTIN 400 MG CAPSULAS DURAS , 30 C?PSULAS [Concomitant]
     Indication: ARTHRALGIA
     Route: 048
  7. LOBIVON 5 MG COMPRIMIDOS, 28 COMPRIMIDOS [Concomitant]
     Route: 048
  8. NOCTAMID 2 MG COMPRIMIDOS, 20 COMPRIMIDOS [Concomitant]
     Route: 048

REACTIONS (4)
  - Toxic encephalopathy [Recovered/Resolved]
  - Somnolence [Recovered/Resolved]
  - Speech disorder [Recovered/Resolved]
  - Confusional state [Recovered/Resolved]
